FAERS Safety Report 16838091 (Version 1)
Quarter: 2019Q3

REPORT INFORMATION
  Report Type: Report from Study
  Country: US (occurrence: US)
  Receive Date: 20190923
  Receipt Date: 20190923
  Transmission Date: 20191005
  Serious: Yes (Hospitalization)
  Sender: FDA-Public Use
  Company Number: US-B.I. PHARMACEUTICALS,INC./RIDGEFIELD-2019-BI-028038

PATIENT
  Sex: Male

DRUGS (2)
  1. OFEV [Suspect]
     Active Substance: NINTEDANIB
     Indication: IDIOPATHIC PULMONARY FIBROSIS
     Dosage: 12 HOURS APART WITH FOOD
     Route: 048
     Dates: start: 20190617, end: 20190702
  2. OFEV [Suspect]
     Active Substance: NINTEDANIB
     Dosage: 12 HOURS APART WITH FOOD
     Route: 048
     Dates: start: 20190911

REACTIONS (7)
  - Hepatic enzyme increased [Not Recovered/Not Resolved]
  - Diarrhoea [Recovered/Resolved]
  - Abdominal discomfort [Recovered/Resolved]
  - Diarrhoea [Not Recovered/Not Resolved]
  - Gastric disorder [Unknown]
  - Fistula [Not Recovered/Not Resolved]
  - Enzyme level increased [Unknown]
